FAERS Safety Report 13197554 (Version 9)
Quarter: 2018Q4

REPORT INFORMATION
  Report Type: Spontaneous
  Country: US (occurrence: US)
  Receive Date: 20170208
  Receipt Date: 20181120
  Transmission Date: 20190204
  Serious: Yes (Hospitalization, Disabling, Other)
  Sender: FDA-Public Use
  Company Number: US-PFIZER INC-2017056057

PATIENT
  Age: 28 Year
  Sex: Male

DRUGS (8)
  1. DILANTIN [Suspect]
     Active Substance: PHENYTOIN
     Indication: SEIZURE PROPHYLAXIS
     Dosage: 3 DF, 2X/DAY
     Route: 048
  2. LAMICTAL [Concomitant]
     Active Substance: LAMOTRIGINE
     Dosage: UNK, DAILY IN THE MORNING
     Route: 048
  3. LAMICTAL [Concomitant]
     Active Substance: LAMOTRIGINE
     Indication: SEIZURE
     Dosage: UNK
     Dates: start: 2016
  4. KEPPRA [Concomitant]
     Active Substance: LEVETIRACETAM
     Dosage: 1 DF, 2X/DAY, ALONG WITH ONE 1000 MG TABLET
     Route: 048
  5. DILANTIN [Suspect]
     Active Substance: PHENYTOIN
     Dosage: UNK
     Dates: start: 201401, end: 201602
  6. KEPPRA [Concomitant]
     Active Substance: LEVETIRACETAM
     Indication: SEIZURE
     Dosage: 1 DF, 2X/DAY, ALONG WITH ONE 250 MG TABLET
     Route: 048
  7. DILANTIN [Suspect]
     Active Substance: PHENYTOIN
     Indication: SEIZURE
     Dosage: UNK
     Route: 048
     Dates: start: 2010
  8. LAMICTAL [Concomitant]
     Active Substance: LAMOTRIGINE
     Dosage: UNK, DAILY IN THE AFTERNOON
     Route: 048

REACTIONS (2)
  - Cerebellar atrophy [Not Recovered/Not Resolved]
  - Cerebellar ataxia [Not Recovered/Not Resolved]

NARRATIVE: CASE EVENT DATE: 2015
